FAERS Safety Report 5287185-2 (Version None)
Quarter: 2007Q1

REPORT INFORMATION
  Report Type: 
  Country: None (occurrence: None)
  Receive Date: 20070116
  Receipt Date: 20061011
  Transmission Date: 20070707
  Serious: No
  Sender: FDA-Public Use
  Company Number: 2006SP003636

PATIENT
  Age: 50 Year
  Sex: Male

DRUGS (4)
  1. LUNESTA [Suspect]
     Dosage: ORAL
     Route: 048
  2. SEROQUEL [Concomitant]
  3. NEURONTIN [Concomitant]
  4. DEPAKOTE [Concomitant]

REACTIONS (2)
  - HALLUCINATION, VISUAL [None]
  - OVERDOSE [None]
